FAERS Safety Report 9988057 (Version 2)
Quarter: 2014Q1

REPORT INFORMATION
  Report Type: Spontaneous
  Country: CA (occurrence: CA)
  Receive Date: 20140308
  Receipt Date: 20140308
  Transmission Date: 20141002
  Serious: Yes (Death, Hospitalization, Other)
  Sender: FDA-Public Use
  Company Number: CA-AMGEN-CANSP2014013726

PATIENT
  Sex: 0

DRUGS (1)
  1. XGEVA [Suspect]
     Indication: METASTASES TO BONE
     Dosage: UNK
     Route: 065

REACTIONS (8)
  - Disease progression [Fatal]
  - Renal failure [Unknown]
  - Hypocalcaemia [Unknown]
  - Influenza like illness [Unknown]
  - Mouth ulceration [Unknown]
  - Rash [Unknown]
  - Trismus [Unknown]
  - Hypophosphataemia [Unknown]
